FAERS Safety Report 10045729 (Version 7)
Quarter: 2014Q2

REPORT INFORMATION
  Report Type: Spontaneous
  Country: JP (occurrence: JP)
  Receive Date: 20140328
  Receipt Date: 20140613
  Transmission Date: 20141212
  Serious: Yes (Death, Life-Threatening, Hospitalization, Other)
  Sender: FDA-Public Use
  Company Number: JP-009507513-1403JPN013256

PATIENT
  Age: 50 Year
  Sex: Male
  Weight: 38.55 kg

DRUGS (13)
  1. PEGINTRON [Suspect]
     Indication: CHRONIC HEPATITIS C
     Dosage: 100 MCG, 1 WEEK
     Route: 058
     Dates: start: 20140208, end: 20140315
  2. PEGINTRON [Suspect]
     Dosage: UNK
     Route: 058
     Dates: start: 2005
  3. REBETOL [Suspect]
     Indication: CHRONIC HEPATITIS C
     Dosage: 400 MG, BID
     Route: 048
     Dates: start: 20140208, end: 20140322
  4. REBETOL [Suspect]
     Dosage: UNK
     Route: 048
     Dates: start: 2001
  5. REBETOL [Suspect]
     Dosage: UNK
     Route: 048
     Dates: start: 2005
  6. PEGASYS [Suspect]
     Indication: CHRONIC HEPATITIS C
     Dosage: UNK
     Route: 051
     Dates: start: 2009, end: 2014
  7. SOVRIAD [Suspect]
     Indication: CHRONIC HEPATITIS C
     Dosage: 100 MG, 1 DAY
     Route: 048
     Dates: start: 20140208, end: 20140322
  8. FLOMOX [Concomitant]
     Indication: PHARYNGITIS
     Dosage: 100 MG, TID
     Route: 048
     Dates: start: 20140315, end: 20140319
  9. FLOMOX [Concomitant]
     Indication: PYREXIA
  10. DEXALTIN [Concomitant]
     Indication: STOMATITIS
     Dosage: PROPOER DOSE
     Route: 061
     Dates: start: 20140308
  11. AZUNOL (SODIUM GUALENATE) [Concomitant]
     Indication: STOMATITIS
     Dosage: PROPER DOSE
     Route: 049
     Dates: start: 20140308
  12. SP TROCHES [Concomitant]
     Indication: STOMATITIS
     Dosage: PROPER DOSE
     Route: 049
     Dates: start: 20140308
  13. LOXONIN [Concomitant]
     Indication: ORAL PAIN
     Dosage: 60 MG, TID
     Route: 048
     Dates: start: 20140308

REACTIONS (43)
  - Oral herpes [Unknown]
  - Diarrhoea [Unknown]
  - No therapeutic response [Unknown]
  - Altered state of consciousness [Not Recovered/Not Resolved]
  - Fatigue [Unknown]
  - Feeling abnormal [Unknown]
  - Decreased appetite [Unknown]
  - Dizziness [Unknown]
  - Back pain [Unknown]
  - Restlessness [Unknown]
  - Platelet count decreased [Fatal]
  - Chills [Unknown]
  - Malaise [Unknown]
  - Septic shock [Fatal]
  - Renal failure acute [Fatal]
  - Myalgia [Recovering/Resolving]
  - Subarachnoid haemorrhage [Fatal]
  - Cerebral haemorrhage [Fatal]
  - Disseminated intravascular coagulation [Fatal]
  - Hepatic failure [Fatal]
  - Endotracheal intubation [Fatal]
  - Mechanical ventilation [Fatal]
  - Continuous haemodiafiltration [Unknown]
  - Blood product transfusion [Unknown]
  - Platelet transfusion [Unknown]
  - Cardiac arrest [Fatal]
  - Resuscitation [Fatal]
  - Oral disorder [Unknown]
  - Tonsillitis [Unknown]
  - Oedema [Unknown]
  - Throat lesion [Unknown]
  - Fluid intake reduced [Unknown]
  - Hypocalcaemia [Fatal]
  - Acidosis [Unknown]
  - Hypoglycaemia [Unknown]
  - Muscle twitching [Recovering/Resolving]
  - Stomatitis [Not Recovered/Not Resolved]
  - Dysgeusia [Unknown]
  - Chills [Unknown]
  - Somnolence [Unknown]
  - Malaise [Unknown]
  - Dry mouth [Unknown]
  - Headache [Unknown]
